FAERS Safety Report 18200652 (Version 2)
Quarter: 2020Q4

REPORT INFORMATION
  Report Type: Spontaneous
  Country: JP (occurrence: JP)
  Receive Date: 20200827
  Receipt Date: 20201105
  Transmission Date: 20210113
  Serious: Yes (Hospitalization)
  Sender: FDA-Public Use
  Company Number: JP-ROCHE-2666162

PATIENT
  Age: 74 Year
  Sex: Female
  Weight: 35 kg

DRUGS (3)
  1. CARBOPLATIN. [Concomitant]
     Active Substance: CARBOPLATIN
     Indication: SMALL CELL LUNG CANCER
     Dosage: DOSAGE IS UNCERTAIN.
     Route: 041
     Dates: start: 20200120, end: 20200425
  2. TECENTRIQ [Suspect]
     Active Substance: ATEZOLIZUMAB
     Indication: SMALL CELL LUNG CANCER
     Dosage: LAST DOSE RECEIVED ON 18/JUN/2020
     Route: 041
     Dates: start: 20200312
  3. LASTET [Concomitant]
     Active Substance: ETOPOSIDE
     Indication: SMALL CELL LUNG CANCER
     Dosage: DOSAGE IS UNCERTAIN.
     Route: 041
     Dates: start: 20200120, end: 20200425

REACTIONS (4)
  - Acute generalised exanthematous pustulosis [Recovered/Resolved]
  - Diarrhoea [Unknown]
  - Laryngeal discomfort [Unknown]
  - Skin disorder [Recovering/Resolving]

NARRATIVE: CASE EVENT DATE: 20200702
